FAERS Safety Report 5913900-8 (Version None)
Quarter: 2008Q4

REPORT INFORMATION
  Report Type: 
  Country: None (occurrence: None)
  Receive Date: 20081009
  Receipt Date: 20080929
  Transmission Date: 20090506
  Serious: Yes (Hospitalization)
  Sender: FDA-Public Use
  Company Number: B0539182A

PATIENT
  Age: 78 Year
  Sex: Female
  Weight: 49 kg

DRUGS (7)
  1. ARIXTRA [Suspect]
     Indication: PHLEBITIS
     Dosage: 7.5MG PER DAY
     Route: 058
     Dates: start: 20080808, end: 20080912
  2. SKENAN [Concomitant]
     Dosage: 20MG TWICE PER DAY
     Route: 065
  3. DAFALGAN [Concomitant]
     Dosage: 2G THREE TIMES PER DAY
     Route: 065
  4. LASIX [Concomitant]
     Dosage: 20MG PER DAY
     Route: 065
  5. BEFIZAL [Concomitant]
     Dosage: 200MG PER DAY
     Route: 065
  6. DIFFU K [Concomitant]
     Dosage: 2UNIT PER DAY
     Route: 065
  7. ATARAX [Concomitant]
     Dosage: 25MG PER DAY
     Route: 065

REACTIONS (9)
  - ABDOMINAL PAIN LOWER [None]
  - ABDOMINAL WALL HAEMATOMA [None]
  - ANAEMIA [None]
  - C-REACTIVE PROTEIN INCREASED [None]
  - INCORRECT DOSE ADMINISTERED [None]
  - INCORRECT DRUG ADMINISTRATION DURATION [None]
  - LYMPHOPENIA [None]
  - NAUSEA [None]
  - OVERDOSE [None]
